FAERS Safety Report 4507777-5 (Version None)
Quarter: 2004Q4

REPORT INFORMATION
  Report Type: 
  Country: None (occurrence: None)
  Receive Date: 20041123
  Receipt Date: 20041119
  Transmission Date: 20050328
  Serious: Yes (Hospitalization)
  Sender: FDA-Public Use
  Company Number: US-BRISTOL-MYERS SQUIBB COMPANY-12771630

PATIENT
  Age: 66 Year
  Sex: Female

DRUGS (15)
  1. CYCLOPHOSPHAMIDE [Suspect]
     Indication: CHRONIC LYMPHOCYTIC LEUKAEMIA
     Dosage: DAYS 5, 6, AND 7
     Route: 042
     Dates: start: 20021219, end: 20021119
  2. FLUDARA [Suspect]
     Indication: CHRONIC LYMPHOCYTIC LEUKAEMIA
     Dosage: DAYS 5,6,7
     Route: 042
     Dates: start: 20021119, end: 20021119
  3. GENASENSE [Suspect]
     Indication: CHRONIC LYMPHOCYTIC LEUKAEMIA
     Dosage: DAYS 1 TO 7
     Route: 042
     Dates: start: 20021122, end: 20021122
  4. AMLODIPINE [Concomitant]
  5. CALCIUM CARBONATE [Concomitant]
  6. PAROXETINE HCL [Concomitant]
  7. RISEDRONATE SODIUM [Concomitant]
  8. EPOETIN ALFA [Concomitant]
  9. FILGRASTIM [Concomitant]
  10. SULFAMETHOXAZOLE + TRIMETHOPRIM [Concomitant]
  11. FAMCICLOVIR [Concomitant]
  12. PROCHLORPERAZINE [Concomitant]
  13. ONDANSETRON [Concomitant]
  14. PREDNISONE [Concomitant]
  15. PROMETHAZINE HCL [Concomitant]

REACTIONS (6)
  - CHEST DISCOMFORT [None]
  - HAEMATOCRIT DECREASED [None]
  - HAEMOGLOBIN DECREASED [None]
  - HYPOKALAEMIA [None]
  - NON-CARDIAC CHEST PAIN [None]
  - PLATELET COUNT DECREASED [None]
